FAERS Safety Report 17237030 (Version 2)
Quarter: 2021Q2

REPORT INFORMATION
  Report Type: Spontaneous
  Country: IN (occurrence: IN)
  Receive Date: 20200106
  Receipt Date: 20210415
  Transmission Date: 20210716
  Serious: Yes (Hospitalization)
  Sender: FDA-Public Use
  Company Number: IN-PFIZER INC-2019562533

PATIENT
  Age: 51 Year
  Sex: Female
  Weight: 72 kg

DRUGS (3)
  1. PHENYTOIN. [Suspect]
     Active Substance: PHENYTOIN
     Indication: GENERALISED TONIC-CLONIC SEIZURE
     Dosage: 100 MG/ VIAL IN NS OVER 15 MINUTES, UNK
     Route: 042
  2. PHENYTOIN. [Suspect]
     Active Substance: PHENYTOIN
     Dosage: 100 MG, 3X/DAY
     Route: 040
  3. NORMAL SALINE [Concomitant]
     Active Substance: SODIUM CHLORIDE
     Indication: VEHICLE SOLUTION USE
     Dosage: 100 ML, UNK

REACTIONS (7)
  - Product use issue [Unknown]
  - Seizure [Recovered/Resolved]
  - Overdose [Unknown]
  - Off label use [Unknown]
  - Blood disorder [Recovered/Resolved]
  - Dizziness [Recovered/Resolved]
  - Hypotension [Recovered/Resolved]
